FAERS Safety Report 25146648 (Version 1)
Quarter: 2025Q2

REPORT INFORMATION
  Report Type: Spontaneous
  Country: US (occurrence: None)
  Receive Date: 20250401
  Receipt Date: 20250401
  Transmission Date: 20250716
  Serious: Yes (Life-Threatening)
  Sender: FDA-CTU
  Company Number: None

PATIENT
  Age: 52 Year
  Sex: Male
  Weight: 83.91 kg

DRUGS (6)
  1. HYDROMORPHONE [Suspect]
     Active Substance: HYDROMORPHONE
  2. BUPIVACAINE [Suspect]
     Active Substance: BUPIVACAINE
  3. ADVIL [Concomitant]
     Active Substance: IBUPROFEN
  4. Medtronic spinal cord stimulator implant [Concomitant]
  5. Medtronic intrathecal pain pump implant [Concomitant]
  6. ADVIL [Concomitant]
     Active Substance: IBUPROFEN

REACTIONS (2)
  - Drug withdrawal syndrome [None]
  - Incorrect dose administered by device [None]

NARRATIVE: CASE EVENT DATE: 20250301
